FAERS Safety Report 16178710 (Version 1)
Quarter: 2019Q2

REPORT INFORMATION
  Report Type: Spontaneous
  Country: CA (occurrence: CA)
  Receive Date: 20190409
  Receipt Date: 20190409
  Transmission Date: 20190711
  Serious: No
  Sender: FDA-Public Use
  Company Number: None

PATIENT
  Age: 35 Year
  Sex: Female
  Weight: 96.75 kg

DRUGS (1)
  1. AIMOVIG [Suspect]
     Active Substance: ERENUMAB-AOOE
     Indication: MIGRAINE
     Dosage: ?          OTHER FREQUENCY:ONCE A MONTH;?
     Route: 058
     Dates: start: 20190406, end: 20190406

REACTIONS (4)
  - Musculoskeletal stiffness [None]
  - Chest discomfort [None]
  - Paraesthesia [None]
  - Influenza like illness [None]

NARRATIVE: CASE EVENT DATE: 20190408
